FAERS Safety Report 9388886 (Version 1)
Quarter: 2013Q3

REPORT INFORMATION
  Report Type: Report from Study
  Country: US (occurrence: US)
  Receive Date: 20130708
  Receipt Date: 20130708
  Transmission Date: 20140515
  Serious: Yes (Other)
  Sender: FDA-Public Use
  Company Number: US-ABBOTT-13P-163-1058575-00

PATIENT
  Age: 71 Year
  Sex: Female
  Weight: 58.11 kg

DRUGS (8)
  1. HUMIRA [Suspect]
     Indication: RHEUMATOID ARTHRITIS
     Route: 050
     Dates: start: 20110915, end: 201211
  2. HUMIRA [Suspect]
     Dates: start: 20130213, end: 201305
  3. LISINOPRIL [Concomitant]
     Indication: HYPERTENSION
  4. FOLIC ACID [Concomitant]
     Indication: VITAMIN SUPPLEMENTATION
  5. HYDROXYCHLOROQUINE [Concomitant]
     Indication: RHEUMATOID ARTHRITIS
  6. TYLENOL [Concomitant]
     Indication: HEADACHE
  7. ALEVE [Concomitant]
     Indication: HEADACHE
  8. ANTIBIOTICS [Concomitant]
     Indication: SINUSITIS

REACTIONS (16)
  - Irritable bowel syndrome [Recovered/Resolved]
  - Cataract [Recovered/Resolved]
  - Gastric disorder [Recovered/Resolved]
  - Injection site pain [Not Recovered/Not Resolved]
  - Alopecia [Recovered/Resolved]
  - Back pain [Recovered/Resolved]
  - Abdominal pain [Recovered/Resolved]
  - Pain [Recovered/Resolved]
  - Sinusitis [Recovered/Resolved]
  - Influenza [Recovered/Resolved]
  - Diverticulitis [Not Recovered/Not Resolved]
  - Diverticulum [Unknown]
  - Limb injury [Recovered/Resolved]
  - Rheumatoid arthritis [Recovered/Resolved]
  - Arthralgia [Recovered/Resolved]
  - Joint swelling [Not Recovered/Not Resolved]
